FAERS Safety Report 11140131 (Version 1)
Quarter: 2015Q2

REPORT INFORMATION
  Report Type: Report from Study
  Country: BR (occurrence: BR)
  Receive Date: 20150527
  Receipt Date: 20150527
  Transmission Date: 20150821
  Serious: Yes (Other)
  Sender: FDA-Public Use
  Company Number: BR-ABBVIE-15K-020-1395663-00

PATIENT
  Age: 57 Year
  Sex: Male
  Weight: 59 kg

DRUGS (1)
  1. HUMIRA [Suspect]
     Active Substance: ADALIMUMAB
     Indication: RHEUMATOID ARTHRITIS
     Route: 058
     Dates: start: 2007

REACTIONS (8)
  - Arthralgia [Recovering/Resolving]
  - Blood cholesterol abnormal [Unknown]
  - Cardiac disorder [Recovering/Resolving]
  - Abdominal pain upper [Unknown]
  - Arrhythmia [Recovering/Resolving]
  - Dizziness [Recovering/Resolving]
  - Hypertension [Unknown]
  - Syncope [Recovering/Resolving]

NARRATIVE: CASE EVENT DATE: 20110301
